FAERS Safety Report 5707173-9 (Version None)
Quarter: 2008Q2

REPORT INFORMATION
  Report Type: 
  Country: None (occurrence: None)
  Receive Date: 20080415
  Receipt Date: 20080415
  Transmission Date: 20081010
  Serious: Yes (Hospitalization)
  Sender: FDA-Public Use
  Company Number: None

PATIENT
  Age: 82 Year
  Sex: Male
  Weight: 97 kg

DRUGS (2)
  1. LORATADINE [Suspect]
     Dosage: 10MG EVERY DAY PO
     Route: 048
     Dates: start: 20071005, end: 20080209
  2. METOPROLOL TARTRATE [Suspect]
     Indication: HYPERTENSION
     Dosage: 50MG BID PO
     Route: 048
     Dates: start: 20071113, end: 20080209

REACTIONS (2)
  - FALL [None]
  - SYNCOPE [None]
